FAERS Safety Report 5852886-1 (Version None)
Quarter: 2008Q3

REPORT INFORMATION
  Report Type: 
  Country: None (occurrence: None)
  Receive Date: 20080821
  Receipt Date: 20080815
  Transmission Date: 20090109
  Serious: Yes (Other)
  Sender: FDA-Public Use
  Company Number: PHEH2008US06921

PATIENT
  Sex: Female

DRUGS (2)
  1. DESFERAL [Suspect]
     Indication: IRON OVERLOAD
  2. DEFERIPRONE [Concomitant]
     Indication: IRON OVERLOAD

REACTIONS (1)
  - LUNG DISORDER [None]
